FAERS Safety Report 8776180 (Version 2)
Quarter: 2012Q4

REPORT INFORMATION
  Report Type: 
  Country: US (occurrence: US)
  Receive Date: 20120910
  Receipt Date: 20120917
  Transmission Date: 20130627
  Serious: Yes (Death, Hospitalization)
  Sender: FDA-Public Use
  Company Number: US-B.I. PHARMACEUTICALS,INC./RIDGEFIELD-2012-BP-22190BP

PATIENT
  Age: 7 None
  Sex: Male

DRUGS (1)
  1. PRADAXA [Suspect]

REACTIONS (1)
  - Haemorrhage intracranial [Fatal]
